FAERS Safety Report 21394262 (Version 1)
Quarter: 2022Q3

REPORT INFORMATION
  Report Type: Spontaneous
  Country: DE (occurrence: DE)
  Receive Date: 20220930
  Receipt Date: 20220930
  Transmission Date: 20221027
  Serious: Yes (Hospitalization, Other)
  Sender: FDA-Public Use
  Company Number: DE-ADRED-08309-01

PATIENT
  Age: 60 Year
  Sex: Female
  Weight: 75 kg

DRUGS (13)
  1. CINACALCET HYDROCHLORIDE [Suspect]
     Active Substance: CINACALCET HYDROCHLORIDE
     Indication: Product used for unknown indication
     Dosage: 90 MILLIGRAM ( 0-0-1-0, TABLETTEN)
     Route: 048
  2. PIPERACILLIN AND TAZOBACTAM [Suspect]
     Active Substance: PIPERACILLIN SODIUM\TAZOBACTAM SODIUM
     Indication: Product used for unknown indication
     Dosage: UNK (4|0.5 G, NACH SCHEMA, INJEKTIONS-/INFUSIONSL?SUNG)
     Route: 042
  3. TORSEMIDE [Suspect]
     Active Substance: TORSEMIDE
     Indication: Product used for unknown indication
     Dosage: 50 MILLIGRAM ( NACH SCHEMA, TABLETTEN)
     Route: 048
  4. ALFACALCIDOL [Concomitant]
     Active Substance: ALFACALCIDOL
     Indication: Product used for unknown indication
     Dosage: 0.25 MICROGRAM ( 0-0-1-0, KAPSELN)
     Route: 048
  5. BECLOMETHASONE\FORMOTEROL [Concomitant]
     Active Substance: BECLOMETHASONE\FORMOTEROL
     Indication: Product used for unknown indication
     Dosage: UNK (100|6 ?G, 2-0-2-0, DOSIERAEROSOL)
  6. CHOLECALCIFEROL [Concomitant]
     Active Substance: CHOLECALCIFEROL
     Indication: Product used for unknown indication
     Dosage: 2000 INTERNATIONAL UNIT (NACH SCHEMA, KAPSELN)
     Route: 048
  7. DALTEPARIN [Concomitant]
     Active Substance: DALTEPARIN
     Indication: Product used for unknown indication
     Dosage: 2500 INTERNATIONAL UNIT ( 0-0-1-0, FERTIGSPRITZEN)
     Route: 058
  8. EZETIMIBE [Concomitant]
     Active Substance: EZETIMIBE
     Indication: Product used for unknown indication
     Dosage: 10 MILLIGRAM (1-0-0-0, TABLETTEN)
     Route: 048
  9. GABAPENTIN [Concomitant]
     Active Substance: GABAPENTIN
     Indication: Product used for unknown indication
     Dosage: 100 MILLIGRAM (, 1-0-0-2, KAPSELN)
     Route: 048
  10. IRON [Concomitant]
     Active Substance: IRON
     Indication: Product used for unknown indication
     Dosage: 500 MILLIGRAM ( 1-1-1-0, TABLETTEN)
     Route: 048
  11. PANTOPRAZOLE SODIUM [Concomitant]
     Active Substance: PANTOPRAZOLE SODIUM
     Indication: Product used for unknown indication
     Dosage: 40 MILLIGRAM (1-0-0-0, RETARD-TABLETTEN)
     Route: 048
  12. ROSUVASTATIN [Concomitant]
     Active Substance: ROSUVASTATIN
     Indication: Product used for unknown indication
     Dosage: 10 MILLIGRAM ( 0-0-1-0, TABLETTEN)
     Route: 048
  13. ALBUTEROL [Concomitant]
     Active Substance: ALBUTEROL
     Indication: Product used for unknown indication
     Dosage: 0.1 MILLIGRAM (BEDARF, DOSIERAEROSOL)

REACTIONS (4)
  - Ileus [Unknown]
  - Diarrhoea [Unknown]
  - Pain [Unknown]
  - Nausea [Unknown]
